FAERS Safety Report 16724783 (Version 1)
Quarter: 2019Q3

REPORT INFORMATION
  Report Type: Spontaneous
  Country: US (occurrence: US)
  Receive Date: 20190821
  Receipt Date: 20190821
  Transmission Date: 20191005
  Serious: Yes (Other)
  Sender: FDA-Public Use
  Company Number: US-NOVOPROD-679562

PATIENT
  Sex: Female

DRUGS (3)
  1. OZEMPIC [Suspect]
     Active Substance: SEMAGLUTIDE
     Dosage: 1 MG, QW
     Route: 058
     Dates: start: 201907
  2. OZEMPIC [Suspect]
     Active Substance: SEMAGLUTIDE
     Dosage: 0.5 MG QW FOR TWO WEEKS
     Route: 058
     Dates: start: 201907, end: 201907
  3. OZEMPIC [Suspect]
     Active Substance: SEMAGLUTIDE
     Indication: TYPE 2 DIABETES MELLITUS
     Dosage: 0.25 MG QW FOR TWO WEEKS
     Route: 058
     Dates: start: 20190629, end: 201907

REACTIONS (5)
  - Eye swelling [Not Recovered/Not Resolved]
  - Paraesthesia [Recovered/Resolved]
  - Constipation [Not Recovered/Not Resolved]
  - Product communication issue [Unknown]
  - Off label use [Recovered/Resolved]

NARRATIVE: CASE EVENT DATE: 2019
